FAERS Safety Report 8499923-6 (Version None)
Quarter: 2012Q3

REPORT INFORMATION
  Report Type: 
  Country: None (occurrence: None)
  Receive Date: 20120710
  Receipt Date: 20120709
  Transmission Date: 20120928
  Serious: Yes (Hospitalization, Other)
  Sender: FDA-Public Use
  Company Number: PHFR2010IE04596

PATIENT
  Sex: Male
  Weight: 173.99 kg

DRUGS (10)
  1. CLOZARIL [Suspect]
     Indication: PSYCHOTIC DISORDER
     Dosage: UNK UKN, UNK
     Route: 048
     Dates: start: 20101004, end: 20101008
  2. ASPIRIN [Concomitant]
     Dosage: 75 MG, QD
     Route: 048
  3. SERTRALINE HYDROCHLORIDE [Concomitant]
     Dosage: UNK
     Route: 048
     Dates: start: 20090101
  4. CLOZARIL [Suspect]
     Indication: DEMENTIA WITH LEWY BODIES
     Dosage: UNK UKN, UNK
     Route: 048
     Dates: start: 20101001
  5. CLONAZEPAM [Concomitant]
     Dosage: 0.5 MG NOCTE
     Route: 065
  6. OLANZAPINE [Concomitant]
     Dosage: 2.5 MG, BID
     Route: 048
  7. CLOZARIL [Suspect]
     Indication: SCHIZOPHRENIA
     Dosage: 75 MG, QD
     Route: 048
     Dates: start: 20120228
  8. RIVASTIGMINE [Concomitant]
     Indication: MEMORY IMPAIRMENT
     Dosage: 4.5 MG, BID
     Route: 048
  9. RIVASTIGMINE [Concomitant]
     Dosage: 6 MG, QD
     Route: 048
     Dates: start: 20100901
  10. SERTRALINE HYDROCHLORIDE [Concomitant]
     Dosage: 50 MG, QD
     Route: 048

REACTIONS (11)
  - DEMENTIA [None]
  - VIRAL INFECTION [None]
  - INFLUENZA LIKE ILLNESS [None]
  - COUGH [None]
  - LOWER RESPIRATORY TRACT INFECTION [None]
  - PYREXIA [None]
  - DEMENTIA WITH LEWY BODIES [None]
  - FATIGUE [None]
  - ASTHENIA [None]
  - MALAISE [None]
  - HEADACHE [None]
